FAERS Safety Report 21385716 (Version 4)
Quarter: 2023Q2

REPORT INFORMATION
  Report Type: Spontaneous
  Country: US (occurrence: US)
  Receive Date: 20220928
  Receipt Date: 20230413
  Transmission Date: 20230721
  Serious: No
  Sender: FDA-Public Use
  Company Number: US-BEH-2022149859

PATIENT
  Age: 61 Year
  Sex: Female

DRUGS (15)
  1. HIZENTRA [Suspect]
     Active Substance: HUMAN IMMUNOGLOBULIN G
     Indication: Stiff person syndrome
     Dosage: 15 GRAM, TWO CONSECUTIVE DAYS, EVERY WEEK
     Route: 058
     Dates: start: 20120412
  2. HIZENTRA [Suspect]
     Active Substance: HUMAN IMMUNOGLOBULIN G
     Dosage: 15 GRAM, TWO CONSECUTIVE DAYS, EVERY WEEK
     Route: 058
     Dates: start: 20120413
  3. HIZENTRA [Suspect]
     Active Substance: HUMAN IMMUNOGLOBULIN G
     Dosage: 16 GRAM, QW (DAILY FOR TWO CONSECUTIVE DAYS EVERY WEEK)
     Route: 058
  4. LINZESS [Concomitant]
     Active Substance: LINACLOTIDE
  5. SYMBICORT [Concomitant]
     Active Substance: BUDESONIDE\FORMOTEROL FUMARATE DIHYDRATE
  6. BACITRACIN;POLYMYXIN [Concomitant]
  7. LOPRESSOR [Concomitant]
     Active Substance: METOPROLOL TARTRATE
  8. DIAZEPAM [Concomitant]
     Active Substance: DIAZEPAM
  9. LYRICA [Concomitant]
     Active Substance: PREGABALIN
  10. AMANTADINE HYDROCHLORIDE [Concomitant]
     Active Substance: AMANTADINE HYDROCHLORIDE
  11. BACLOFEN [Concomitant]
     Active Substance: BACLOFEN
  12. LORAZEPAM [Concomitant]
     Active Substance: LORAZEPAM
  13. OMEPRAZOLE [Concomitant]
     Active Substance: OMEPRAZOLE
  14. PROCHLORPERAZINE MALEATE [Concomitant]
     Active Substance: PROCHLORPERAZINE MALEATE
  15. SPIRIVA [Concomitant]
     Active Substance: TIOTROPIUM BROMIDE MONOHYDRATE
     Dosage: 18 MICROGRAM
     Route: 065

REACTIONS (14)
  - Fatigue [Not Recovered/Not Resolved]
  - Pain in extremity [Not Recovered/Not Resolved]
  - Peripheral swelling [Not Recovered/Not Resolved]
  - Joint swelling [Not Recovered/Not Resolved]
  - Limb discomfort [Not Recovered/Not Resolved]
  - No adverse event [Unknown]
  - Off label use [Unknown]
  - No adverse event [Recovered/Resolved]
  - Product supply issue [Recovered/Resolved]
  - Infusion site oedema [Not Recovered/Not Resolved]
  - Lymphoedema [Not Recovered/Not Resolved]
  - Fatigue [Not Recovered/Not Resolved]
  - Infusion site erythema [Not Recovered/Not Resolved]
  - Skin infection [Not Recovered/Not Resolved]

NARRATIVE: CASE EVENT DATE: 20221003
